FAERS Safety Report 9206396 (Version 2)
Quarter: 2013Q2

REPORT INFORMATION
  Report Type: Spontaneous
  Country: ES (occurrence: None)
  Receive Date: 20130401
  Receipt Date: 20130404
  Transmission Date: 20140414
  Serious: Yes (Hospitalization)
  Sender: FDA-Public Use
  Company Number: FK201301004

PATIENT
  Age: 66 Year
  Sex: Male

DRUGS (3)
  1. FLUOROURACIL (MANUFACTURER UNKNOWN) (FLUOROURACIL) (FLUOROURACIL) [Suspect]
     Indication: RECTAL CANCER
     Dosage: 600 MG/M2, CYCLICAL
  2. OXALIPLATIN [Suspect]
     Indication: RECTAL CANCER
     Dosage: 85 MG/M2, CYCLICAL
  3. FOLINIC ACID [Concomitant]
     Dosage: CYCLICAL

REACTIONS (1)
  - Renal failure acute [None]
